FAERS Safety Report 4298886-7 (Version None)
Quarter: 2004Q1

REPORT INFORMATION
  Report Type: 
  Country: None (occurrence: None)
  Receive Date: 20040126
  Receipt Date: 20031110
  Transmission Date: 20041129
  Serious: No
  Sender: FDA-Public Use
  Company Number: USA031152125

PATIENT
  Age: 55 Year
  Sex: Male

DRUGS (4)
  1. STRATTERA [Suspect]
     Dosage: 80 MG/DAY
  2. INDERAL [Concomitant]
  3. ZESTRIL [Concomitant]
  4. LIPITOR [Concomitant]

REACTIONS (3)
  - ANOREXIA [None]
  - EJACULATION DISORDER [None]
  - URINARY TRACT DISORDER [None]
